FAERS Safety Report 14232284 (Version 2)
Quarter: 2017Q4

REPORT INFORMATION
  Report Type: Spontaneous
  Country: US (occurrence: US)
  Receive Date: 20171128
  Receipt Date: 20171130
  Transmission Date: 20180321
  Serious: Yes (Other)
  Sender: FDA-Public Use
  Company Number: US-PFIZER INC-2017509203

PATIENT
  Age: 22 Year
  Sex: Female
  Weight: 61 kg

DRUGS (8)
  1. ACETAMINOPHEN. [Interacting]
     Active Substance: ACETAMINOPHEN
     Indication: VON WILLEBRAND^S DISEASE
     Dosage: 500 MG, UNK
  2. ACETAMINOPHEN. [Interacting]
     Active Substance: ACETAMINOPHEN
     Indication: DYSMENORRHOEA
     Dosage: 325 MG, 4X/DAY (EVERY 6 HOURS)
  3. ZOLOFT [Suspect]
     Active Substance: SERTRALINE HYDROCHLORIDE
     Indication: OBSESSIVE-COMPULSIVE DISORDER
     Dosage: 12.5 MG, 2X/DAY (25MG HALF TABLET TWICE DAILY)
     Route: 048
     Dates: start: 201604
  4. ZOLOFT [Interacting]
     Active Substance: SERTRALINE HYDROCHLORIDE
     Indication: POST-TRAUMATIC STRESS DISORDER
  5. TYLENOL [Interacting]
     Active Substance: ACETAMINOPHEN
     Indication: DYSMENORRHOEA
     Dosage: 325 MG, 4X/DAY (EVERY 6 HOURS)
  6. ACETAMINOPHEN. [Interacting]
     Active Substance: ACETAMINOPHEN
     Dosage: 650 MG, UNK
  7. TYLENOL EXTRA STRENGTH [Interacting]
     Active Substance: ACETAMINOPHEN
     Indication: DYSMENORRHOEA
     Dosage: 325 MG, 4X/DAY (EVERY 6 HOURS)
  8. MIDOL [Interacting]
     Active Substance: IBUPROFEN
     Indication: DYSMENORRHOEA
     Dosage: 325 MG, 4X/DAY (EVERY 6 HOURS)

REACTIONS (5)
  - Flashback [Unknown]
  - Drug interaction [Unknown]
  - Suicidal ideation [Unknown]
  - Drug ineffective [Unknown]
  - Violence-related symptom [Unknown]
